FAERS Safety Report 9117864 (Version 2)
Quarter: 2013Q2

REPORT INFORMATION
  Report Type: Spontaneous
  Country: AT (occurrence: AT)
  Receive Date: 20130225
  Receipt Date: 20130426
  Transmission Date: 20140414
  Serious: Yes (Other)
  Sender: FDA-Public Use
  Company Number: AT-AMGEN-AUTSP2013011326

PATIENT
  Age: 61 Year
  Sex: Female

DRUGS (3)
  1. PROLIA [Suspect]
     Indication: OSTEOPOROSIS POSTMENOPAUSAL
     Dosage: 60 MG, Q6MO
     Route: 058
     Dates: start: 201204
  2. OLEOVIT                            /00056001/ [Concomitant]
     Dosage: 30 GOUTTES, QWK
  3. MAXI-KALZ                          /00751520/ [Concomitant]
     Dosage: UNK UNK, QD

REACTIONS (16)
  - Chorioretinitis [Unknown]
  - Eye irritation [Unknown]
  - Eye pain [Unknown]
  - Bone loss [Unknown]
  - Gingival recession [Unknown]
  - Pain in jaw [Unknown]
  - Gingival inflammation [Unknown]
  - Dysphagia [Unknown]
  - Throat irritation [Unknown]
  - Dyspnoea [Unknown]
  - Dysuria [Unknown]
  - Micturition urgency [Unknown]
  - Diarrhoea [Unknown]
  - Vomiting [Unknown]
  - Pain [Unknown]
  - Flatulence [Unknown]
